FAERS Safety Report 7440486-1 (Version None)
Quarter: 2011Q2

REPORT INFORMATION
  Report Type: 
  Country: None (occurrence: None)
  Receive Date: 20110427
  Receipt Date: 20110418
  Transmission Date: 20111010
  Serious: Yes (Hospitalization)
  Sender: FDA-Public Use
  Company Number: JP-CEPHALON-2011001082

PATIENT
  Sex: Female
  Weight: 40 kg

DRUGS (9)
  1. LENOGRASTIM [Concomitant]
     Dates: start: 20101222, end: 20110324
  2. CIPROFLOXACIN HYDROCHLORIDE [Concomitant]
     Dates: start: 20110304, end: 20110314
  3. BENDAMUSTINE HCL [Suspect]
     Route: 042
     Dates: start: 20110113, end: 20110114
  4. RITUXIMAB [Concomitant]
     Dates: start: 20101215, end: 20110202
  5. BIAPENEM [Concomitant]
     Dates: start: 20101227, end: 20110228
  6. ITRACONAZOLE [Concomitant]
  7. CEFEPIME [Concomitant]
  8. BENDAMUSTINE HCL [Suspect]
     Route: 042
     Dates: start: 20110203, end: 20110204
  9. BENDAMUSTINE HCL [Suspect]
     Indication: B-CELL LYMPHOMA
     Route: 042
     Dates: start: 20101216, end: 20101217

REACTIONS (5)
  - SUBCUTANEOUS ABSCESS [None]
  - WHITE BLOOD CELL COUNT DECREASED [None]
  - NEUTROPHIL COUNT DECREASED [None]
  - OEDEMA [None]
  - PYREXIA [None]
